FAERS Safety Report 19805718 (Version 1)
Quarter: 2021Q3

REPORT INFORMATION
  Report Type: Spontaneous
  Country: FR (occurrence: FR)
  Receive Date: 20210909
  Receipt Date: 20210909
  Transmission Date: 20211014
  Serious: Yes (Hospitalization, Other)
  Sender: FDA-Public Use
  Company Number: FR-ETHYPHARM-2021001312

PATIENT
  Age: 21 Year
  Sex: Male

DRUGS (6)
  1. HEROIN [Suspect]
     Active Substance: DIAMORPHINE
     Route: 045
  2. METHADONE [Suspect]
     Active Substance: METHADONE HYDROCHLORIDE
     Dosage: 20 ? 40MG/J
     Route: 048
  3. CRACK (COCAINE BASEE) [Suspect]
     Active Substance: COCAINE
     Route: 055
  4. ALCOOL [Suspect]
     Active Substance: ALCOHOL
     Route: 048
  5. BUPRENORPHINE. [Suspect]
     Active Substance: BUPRENORPHINE
     Route: 048
  6. HEROIN [Suspect]
     Active Substance: DIAMORPHINE
     Route: 055

REACTIONS (2)
  - Road traffic accident [Recovering/Resolving]
  - Drug dependence [Not Recovered/Not Resolved]
